FAERS Safety Report 13904566 (Version 1)
Quarter: 2017Q3

REPORT INFORMATION
  Report Type: Spontaneous
  Country: US (occurrence: US)
  Receive Date: 20170825
  Receipt Date: 20170825
  Transmission Date: 20171127
  Serious: No
  Sender: FDA-Public Use
  Company Number: US-PFIZER INC-2017364672

PATIENT
  Sex: Male

DRUGS (5)
  1. LYRICA [Suspect]
     Active Substance: PREGABALIN
     Indication: DIABETIC NEUROPATHY
     Dosage: 100 MG, 3X/DAY (50 MG, TWO IN THE MORNING, TWO IN THE AFTERNOON AT LUNCH AND TWO IN THE EVENING)
     Dates: start: 201707
  2. MELOXICAM. [Suspect]
     Active Substance: MELOXICAM
     Indication: LUMBAR SPINAL STENOSIS
  3. LYRICA [Suspect]
     Active Substance: PREGABALIN
     Indication: NEUROPATHY PERIPHERAL
     Dosage: 150 MG, DAILY (50 MG, 3 CAPSULES A DAY)
     Route: 048
     Dates: start: 2017
  4. LYRICA [Suspect]
     Active Substance: PREGABALIN
     Indication: LUMBAR SPINAL STENOSIS
  5. MELOXICAM. [Suspect]
     Active Substance: MELOXICAM
     Indication: BACK PAIN
     Dosage: 1 DF, 1X/DAY, AT NIGHT

REACTIONS (5)
  - Peripheral swelling [Not Recovered/Not Resolved]
  - Drug hypersensitivity [Unknown]
  - Erythema [Not Recovered/Not Resolved]
  - Condition aggravated [Not Recovered/Not Resolved]
  - Skin burning sensation [Not Recovered/Not Resolved]

NARRATIVE: CASE EVENT DATE: 2017
